FAERS Safety Report 10750115 (Version 2)
Quarter: 2015Q1

REPORT INFORMATION
  Report Type: Spontaneous
  Country: JP (occurrence: JP)
  Receive Date: 20150129
  Receipt Date: 20150205
  Transmission Date: 20150721
  Serious: No
  Sender: FDA-Public Use
  Company Number: PHHY2014JP164401

PATIENT
  Age: 63 Year
  Sex: Female

DRUGS (8)
  1. BETAMETHASONE [Suspect]
     Active Substance: BETAMETHASONE
     Indication: ERYTHEMA
     Route: 048
  2. OLOPATADINE [Concomitant]
     Active Substance: OLOPATADINE
     Indication: ERYTHEMA MULTIFORME
     Dosage: 5 MG, BID
     Route: 048
  3. CICLOSPORIN [Suspect]
     Active Substance: CYCLOSPORINE
     Indication: PUSTULAR PSORIASIS
     Dosage: 150 MG, QD
     Route: 048
  4. MAXACALCITOL [Concomitant]
     Active Substance: MAXACALCITOL
     Indication: ERYTHEMA MULTIFORME
     Route: 061
  5. ETRETINATE [Concomitant]
     Active Substance: ETRETINATE
     Indication: PUSTULAR PSORIASIS
     Dosage: 30 MG, UNK
     Route: 065
  6. CICLOSPORIN [Suspect]
     Active Substance: CYCLOSPORINE
     Dosage: 200 MG, QD
     Route: 048
  7. CICLOSPORIN [Suspect]
     Active Substance: CYCLOSPORINE
     Dosage: 25 MG, QD
     Route: 048
  8. COLCHICINE. [Concomitant]
     Active Substance: COLCHICINE
     Indication: PUSTULAR PSORIASIS
     Dosage: 0.5 MG, UNK
     Route: 065

REACTIONS (4)
  - Drug ineffective [Unknown]
  - Erythema [Recovered/Resolved]
  - Swelling [Recovered/Resolved]
  - Pustular psoriasis [Recovered/Resolved]
